FAERS Safety Report 24658365 (Version 1)
Quarter: 2024Q4

REPORT INFORMATION
  Report Type: Spontaneous
  Country: CA (occurrence: CA)
  Receive Date: 20241125
  Receipt Date: 20241125
  Transmission Date: 20250115
  Serious: Yes (Hospitalization, Other)
  Sender: GLAXOSMITHKLINE
  Company Number: CA-GSK-CA2024AMR144069

PATIENT

DRUGS (1)
  1. VALTREX [Suspect]
     Active Substance: VALACYCLOVIR HYDROCHLORIDE
     Indication: Oral herpes
     Dosage: 2 G, BID, 2 EVERY 12 HOURS
     Route: 048

REACTIONS (4)
  - Acute kidney injury [Recovered/Resolved]
  - Blood creatine abnormal [Recovered/Resolved]
  - Crystalluria [Recovered/Resolved]
  - Pain [Recovered/Resolved]
